FAERS Safety Report 19981028 (Version 2)
Quarter: 2021Q4

REPORT INFORMATION
  Report Type: Spontaneous
  Country: US (occurrence: US)
  Receive Date: 20211021
  Receipt Date: 20211112
  Transmission Date: 20220303
  Serious: Yes (Other)
  Sender: FDA-Public Use
  Company Number: US-PFIZER INC-202101352629

PATIENT
  Age: 69 Year
  Sex: Female

DRUGS (1)
  1. LIDOCAINE HYDROCHLORIDE [Suspect]
     Active Substance: LIDOCAINE HYDROCHLORIDE
     Dosage: UNK
     Dates: start: 20210115

REACTIONS (8)
  - Implant site infection [Recovered/Resolved]
  - Purulent discharge [Recovered/Resolved]
  - Implant site swelling [Recovered/Resolved]
  - Implant site pain [Recovered/Resolved]
  - Implant site induration [Recovered/Resolved]
  - Contusion [Recovered/Resolved]
  - Implant site discolouration [Recovered/Resolved]
  - Weight decreased [Recovered/Resolved]

NARRATIVE: CASE EVENT DATE: 20210115
